FAERS Safety Report 5583221-4 (Version None)
Quarter: 2008Q1

REPORT INFORMATION
  Report Type: 
  Country: None (occurrence: None)
  Receive Date: 20080103
  Receipt Date: 20080103
  Transmission Date: 20080703
  Serious: Yes (Hospitalization)
  Sender: FDA-Public Use
  Company Number: None

PATIENT
  Sex: Female

DRUGS (1)
  1. DOXIL [Suspect]
     Dosage: IV
     Route: 042
     Dates: start: 20070410, end: 20070410

REACTIONS (3)
  - CHEST PAIN [None]
  - DYSPNOEA [None]
  - RASH [None]
